FAERS Safety Report 7732256-1 (Version None)
Quarter: 2011Q3

REPORT INFORMATION
  Report Type: 
  Country: None (occurrence: None)
  Receive Date: 20110906
  Receipt Date: 20110819
  Transmission Date: 20111222
  Serious: No
  Sender: FDA-Public Use
  Company Number: US-AMGEN-USASP2011027286

PATIENT
  Age: 88 Year
  Sex: Female

DRUGS (6)
  1. FISH OIL [Concomitant]
  2. CALCIUM CARBONATE [Concomitant]
  3. PROLIA [Suspect]
     Indication: OSTEOPOROSIS POSTMENOPAUSAL
     Dosage: 60 MG, Q6MO
     Route: 058
     Dates: start: 20110301
  4. LEVOTHYROXINE SODIUM [Concomitant]
     Dosage: 50 MG, QD
  5. VITAMIN D [Concomitant]
  6. SIMVASTATIN [Concomitant]

REACTIONS (2)
  - STAPHYLOCOCCAL INFECTION [None]
  - RASH [None]
